FAERS Safety Report 25974329 (Version 2)
Quarter: 2025Q4

REPORT INFORMATION
  Report Type: Spontaneous
  Country: EU (occurrence: EU)
  Receive Date: 20251029
  Receipt Date: 20251105
  Transmission Date: 20260118
  Serious: Yes (Other)
  Sender: ESPERION THERAPEUTICS
  Company Number: None

PATIENT

DRUGS (1)
  1. BEMPEDOIC ACID\EZETIMIBE [Suspect]
     Active Substance: BEMPEDOIC ACID\EZETIMIBE
     Indication: Hypercholesterolaemia
     Dosage: 1 DOSAGE FORM, QD (1 TABLET DAILY AT NIGHT)
     Route: 048
     Dates: start: 20240622, end: 20251015

REACTIONS (12)
  - Formication [Unknown]
  - Hot flush [Recovering/Resolving]
  - Hypertension [Recovered/Resolved]
  - Pruritus [Unknown]
  - Muscular weakness [Unknown]
  - Abdominal pain lower [Recovered/Resolved]
  - Headache [Recovered/Resolved]
  - Back pain [Unknown]
  - Abdominal pain lower [Unknown]
  - Muscle spasms [Unknown]
  - Diarrhoea [Unknown]
  - Pain in extremity [Unknown]

NARRATIVE: CASE EVENT DATE: 20250301
